FAERS Safety Report 7305468-9 (Version None)
Quarter: 2011Q1

REPORT INFORMATION
  Report Type: 
  Country: None (occurrence: None)
  Receive Date: 20110222
  Receipt Date: 20110209
  Transmission Date: 20110831
  Serious: Yes (Other)
  Sender: FDA-Public Use
  Company Number: US-SANOFI-AVENTIS-2011SA008667

PATIENT
  Age: 67 Year
  Sex: Female

DRUGS (8)
  1. PEPCID [Concomitant]
  2. MULTAQ [Suspect]
     Indication: ATRIAL FIBRILLATION
     Dosage: ONE HALF OF A 400MG TABLET TWICE DAILY
     Route: 048
     Dates: start: 20101226, end: 20110105
  3. ASPIRIN [Concomitant]
     Route: 048
  4. FISH OIL [Concomitant]
  5. VITAMIN D [Concomitant]
  6. VITAMIN B COMPLEX CAP [Concomitant]
  7. MULTAQ [Suspect]
     Route: 048
     Dates: start: 20110106
  8. MAGNESIUM [Concomitant]

REACTIONS (6)
  - UNDERDOSE [None]
  - NAUSEA [None]
  - ATRIAL FIBRILLATION [None]
  - DIZZINESS [None]
  - ARTHRALGIA [None]
  - JOINT STIFFNESS [None]
